FAERS Safety Report 10522418 (Version 1)
Quarter: 2014Q4

REPORT INFORMATION
  Report Type: Spontaneous
  Country: IT (occurrence: IT)
  Receive Date: 20141016
  Receipt Date: 20141016
  Transmission Date: 20150528
  Serious: Yes (Disabling)
  Sender: FDA-Public Use
  Company Number: IT-009507513-1410ITA007306

PATIENT
  Age: 85 Year
  Sex: Female

DRUGS (7)
  1. IPERTEN [Concomitant]
     Active Substance: MANIDIPINE
  2. ALENDRONATE SODIUM. [Suspect]
     Active Substance: ALENDRONATE SODIUM
     Indication: OSTEOPOROSIS
     Dosage: 1 DF, QW (1 POSOLOGICAL UNIT WEEKLY)
     Route: 048
     Dates: start: 20070101, end: 20130801
  3. LOVASTATIN. [Concomitant]
     Active Substance: LOVASTATIN
     Dosage: 1 TABLET, UNK (1 POSOLOGICAL UNIT)
     Route: 048
  4. HYDROCHLOROTHIAZIDE\VALSARTAN [Concomitant]
     Active Substance: HYDROCHLOROTHIAZIDE\VALSARTAN
  5. NATECAL D3 [Concomitant]
     Active Substance: CALCIUM CARBONATE\CHOLECALCIFEROL
     Dosage: 1 TABLET, UNK (1 POSOLOGICAL UNIT)
     Route: 048
  6. TACHIPIRINA [Concomitant]
     Active Substance: ACETAMINOPHEN
     Dosage: AT NEED (PRN)
  7. ALPRAZOLAM. [Concomitant]
     Active Substance: ALPRAZOLAM
     Route: 048

REACTIONS (1)
  - Osteonecrosis [Not Recovered/Not Resolved]

NARRATIVE: CASE EVENT DATE: 20140217
